FAERS Safety Report 12273524 (Version 1)
Quarter: 2016Q2

REPORT INFORMATION
  Report Type: Spontaneous
  Country: US (occurrence: US)
  Receive Date: 20160415
  Receipt Date: 20160415
  Transmission Date: 20160815
  Serious: Yes (Other)
  Sender: FDA-Public Use
  Company Number: US-DSJP-DSU-2016-112703

PATIENT

DRUGS (6)
  1. EVOXAC [Suspect]
     Active Substance: CEVIMELINE HYDROCHLORIDE
     Dosage: 30 MG, TID
     Route: 048
     Dates: end: 2013
  2. AMLODIPINE [Concomitant]
     Active Substance: AMLODIPINE BESYLATE
     Indication: HYPERTENSION
     Dosage: 10 MG, QD
     Route: 048
     Dates: start: 1996
  3. EVOXAC [Suspect]
     Active Substance: CEVIMELINE HYDROCHLORIDE
     Indication: DRY MOUTH
     Dosage: 30 MG, TID
     Route: 048
     Dates: start: 2005, end: 2010
  4. EVOXAC [Suspect]
     Active Substance: CEVIMELINE HYDROCHLORIDE
     Dosage: 30 MG, TID
     Route: 048
  5. CEVIMELINE HYDROCHLORIDE. [Suspect]
     Active Substance: CEVIMELINE HYDROCHLORIDE
     Indication: DRY MOUTH
     Dosage: UNK
     Dates: start: 2010
  6. BICARBIDINE [Suspect]
     Active Substance: UNSPECIFIED INGREDIENT
     Indication: DRY MOUTH
     Dosage: UNK
     Dates: start: 2013

REACTIONS (6)
  - Bladder cancer [Recovered/Resolved]
  - Drug ineffective [Unknown]
  - Surgery [Recovered/Resolved]
  - Product substitution issue [None]
  - Off label use [Not Recovered/Not Resolved]
  - Blood thyroid stimulating hormone increased [Unknown]

NARRATIVE: CASE EVENT DATE: 2005
